FAERS Safety Report 8213272-2 (Version None)
Quarter: 2012Q1

REPORT INFORMATION
  Report Type: 
  Country: None (occurrence: None)
  Receive Date: 20120315
  Receipt Date: 20120312
  Transmission Date: 20120608
  Serious: Yes (Other)
  Sender: FDA-Public Use
  Company Number: US-PFIZER INC-2012048280

PATIENT
  Sex: Female
  Weight: 110 kg

DRUGS (3)
  1. LYRICA [Suspect]
     Indication: NEUROPATHY PERIPHERAL
     Dosage: UNK
  2. NORVASC [Concomitant]
     Indication: HYPERTENSION
     Dosage: UNK
  3. LYRICA [Suspect]
     Indication: FIBROMYALGIA

REACTIONS (4)
  - OEDEMA [None]
  - MUSCLE SPASMS [None]
  - SWELLING [None]
  - FLUID RETENTION [None]
